FAERS Safety Report 7551583-4 (Version None)
Quarter: 2011Q2

REPORT INFORMATION
  Report Type: 
  Country: None (occurrence: None)
  Receive Date: 20110616
  Receipt Date: 20110603
  Transmission Date: 20111010
  Serious: Yes (Life-Threatening, Hospitalization, Other)
  Sender: FDA-Public Use
  Company Number: US-BAYER-201039492NA

PATIENT
  Age: 36 Year
  Sex: Female
  Weight: 97.052 kg

DRUGS (5)
  1. DROSPIRENONE AND ETHINYL ESTRADIOL [Suspect]
     Indication: CONTRACEPTION
     Dosage: UNK
     Route: 048
     Dates: start: 20080801, end: 20091201
  2. MORPHINE [Concomitant]
     Dosage: UNK
     Dates: start: 20081027
  3. TORADOL [Concomitant]
     Dosage: UNK
     Dates: start: 20081027
  4. DROSPIRENONE AND ETHINYL ESTRADIOL [Suspect]
     Dosage: UNK
     Route: 048
     Dates: start: 20080101, end: 20090101
  5. HYDROCODONE [Concomitant]
     Dosage: UNK
     Dates: start: 20081027

REACTIONS (4)
  - GALLBLADDER NON-FUNCTIONING [None]
  - CHOLECYSTITIS CHRONIC [None]
  - ORGAN FAILURE [None]
  - PAIN [None]
